FAERS Safety Report 25903900 (Version 2)
Quarter: 2025Q4

REPORT INFORMATION
  Report Type: Spontaneous
  Country: EU (occurrence: EU)
  Receive Date: 20251010
  Receipt Date: 20251023
  Transmission Date: 20260118
  Serious: Yes (Other)
  Sender: AUROBINDO
  Company Number: EU-LRB-01085328

PATIENT
  Age: 62 Year
  Sex: Male
  Weight: 112 kg

DRUGS (6)
  1. METOPROLOL [Suspect]
     Active Substance: METOPROLOL
     Indication: Coronary artery bypass
     Dosage: 100 MILLIGRAM, ONCE A DAY (100 MG ONCE A DAY.)
     Route: 048
     Dates: start: 20250608, end: 20250901
  2. ASPIRIN [Concomitant]
     Active Substance: ASPIRIN
     Indication: Product used for unknown indication
     Dosage: UNK (TABLET, 80 MG (MILLIGRAM))
     Route: 048
  3. SPIRONOLACTONE [Concomitant]
     Active Substance: SPIRONOLACTONE
     Indication: Product used for unknown indication
     Dosage: UNK (TABLET, 25 MG (MILLIGRAM))
     Route: 048
  4. NIFEDIPINE [Concomitant]
     Active Substance: NIFEDIPINE
     Indication: Product used for unknown indication
     Dosage: UNK (MODIFIED-RELEASE TABLET, 30 MG (MILLIGRAM))
     Route: 048
  5. LOSARTAN [Concomitant]
     Active Substance: LOSARTAN
     Indication: Product used for unknown indication
     Dosage: UNK (FILM-COATED TABLET, 100 MG (MILLIGRAM))
     Route: 048
  6. ROSUVASTATIN [Concomitant]
     Active Substance: ROSUVASTATIN
     Indication: Product used for unknown indication
     Dosage: UNK (TABLET, 40 MG (MILLIGRAM))
     Route: 048

REACTIONS (5)
  - Loss of consciousness [Recovering/Resolving]
  - Hyperhidrosis [Recovering/Resolving]
  - Palpitations [Recovering/Resolving]
  - Body temperature abnormal [Recovering/Resolving]
  - Bradycardia [Recovering/Resolving]
